FAERS Safety Report 4449627-1 (Version None)
Quarter: 2004Q3

REPORT INFORMATION
  Report Type: 
  Country: None (occurrence: None)
  Receive Date: 20040913
  Receipt Date: 20040827
  Transmission Date: 20050211
  Serious: Yes (Other)
  Sender: FDA-Public Use
  Company Number: 220001L04CHN

PATIENT
  Age: 65 Year

DRUGS (3)
  1. RECOMBINANT HUMAN GROWTH HORMONE (SOMATROPIN) [Suspect]
     Indication: PROPHYLAXIS
     Dosage: 4 DOSAGE FORMS, 1 IN 1 WEEKS, SUBCUTANEOUS
     Route: 058
  2. TESTOSTERONE [Suspect]
     Indication: PROPHYLAXIS
     Dosage: 250 MG, 1 IN 1 MONTHS, INTRA-MUSCULAR
     Route: 030
  3. PRASTERONE [Suspect]
     Indication: PROPHYLAXIS
     Dosage: 50 MG , 1 IN 1 DAYS, PER ORAL
     Route: 048

REACTIONS (4)
  - BLOOD ERYTHROPOIETIN DECREASED [None]
  - DRUG INTERACTION POTENTIATION [None]
  - POLYCYTHAEMIA [None]
  - SELF-MEDICATION [None]
